FAERS Safety Report 25534840 (Version 1)
Quarter: 2025Q3

REPORT INFORMATION
  Report Type: Spontaneous
  Country: US (occurrence: US)
  Receive Date: 20250709
  Receipt Date: 20250709
  Transmission Date: 20251021
  Serious: Yes (Other)
  Sender: AVKARE
  Company Number: US-AvKARE-2180185

PATIENT
  Sex: Male

DRUGS (1)
  1. CAPSAICIN [Suspect]
     Active Substance: CAPSAICIN

REACTIONS (2)
  - Skin burning sensation [Unknown]
  - Muscle spasms [Unknown]

NARRATIVE: CASE EVENT DATE: 20250707
